FAERS Safety Report 5514221-8 (Version None)
Quarter: 2007Q4

REPORT INFORMATION
  Report Type: 
  Country: None (occurrence: None)
  Receive Date: 20071031
  Receipt Date: 20070711
  Transmission Date: 20080405
  Serious: Yes (Other)
  Sender: FDA-Public Use
  Company Number: US020723

PATIENT
  Age: 36 Year
  Sex: Female

DRUGS (2)
  1. PROVIGIL [Suspect]
     Indication: FIBROMYALGIA
     Dosage: 400 MG QD ORAL
     Route: 048
     Dates: start: 20040428
  2. LEXAPRO [Concomitant]

REACTIONS (1)
  - ABORTION SPONTANEOUS [None]
